FAERS Safety Report 4301882-4 (Version None)
Quarter: 2004Q1

REPORT INFORMATION
  Report Type: 
  Country: None (occurrence: None)
  Receive Date: 20040223
  Receipt Date: 20030102
  Transmission Date: 20041129
  Serious: Yes (Hospitalization, Disabling, Other)
  Sender: FDA-Public Use
  Company Number: WAES 0301USA00064

PATIENT
  Age: 66 Year
  Sex: Female
  Weight: 91 kg

DRUGS (6)
  1. [THERAPY UNSPECIFIED] [Concomitant]
  2. VICOPROFEN [Concomitant]
  3. GLUCOPHAGE [Concomitant]
  4. VIOXX [Suspect]
     Indication: ARTHRITIS
     Route: 048
     Dates: start: 19990101, end: 20001201
  5. VIOXX [Suspect]
     Indication: PAIN
     Route: 048
     Dates: start: 19990101, end: 20001201
  6. AVANDIA [Concomitant]

REACTIONS (22)
  - ARTERY DISSECTION [None]
  - ASPIRATION [None]
  - BRAIN STEM INFARCTION [None]
  - CARCINOMA [None]
  - CARDIAC FAILURE CONGESTIVE [None]
  - CARDIOMEGALY [None]
  - CAROTID ARTERY OCCLUSION [None]
  - CAROTID ARTERY STENOSIS [None]
  - CATARACT [None]
  - CONTUSION [None]
  - CORONARY ARTERY DISEASE [None]
  - DYSPNOEA [None]
  - LOCALISED OSTEOARTHRITIS [None]
  - NASOPHARYNGITIS [None]
  - PAIN IN EXTREMITY [None]
  - ROAD TRAFFIC ACCIDENT [None]
  - SNORING [None]
  - SPINAL OSTEOARTHRITIS [None]
  - TOE DEFORMITY [None]
  - VASCULAR OCCLUSION [None]
  - VENTRICULAR HYPERTROPHY [None]
  - WHIPLASH INJURY [None]
